FAERS Safety Report 9978824 (Version 1)
Quarter: 2014Q1

REPORT INFORMATION
  Report Type: Report from Study
  Country: US (occurrence: US)
  Receive Date: 20140306
  Receipt Date: 20140306
  Transmission Date: 20141002
  Serious: No
  Sender: FDA-Public Use
  Company Number: US-ABBVIE-13P-163-1170155-00

PATIENT
  Age: 49 Year
  Sex: Female
  Weight: 59.02 kg

DRUGS (15)
  1. HUMIRA [Suspect]
     Indication: RHEUMATOID ARTHRITIS
     Dates: start: 20131002
  2. AMITRIPTYLINE [Concomitant]
     Indication: INSOMNIA
  3. LISINOPRIL [Concomitant]
     Indication: HYPERTENSION
  4. PREDNISONE [Concomitant]
     Indication: INFLAMMATION
  5. PROMETHAZINE [Concomitant]
     Indication: NAUSEA
  6. NITROFU [Concomitant]
     Indication: KIDNEY INFECTION
  7. TAMSULOSIN [Concomitant]
     Indication: URINARY RETENTION
  8. TRAMADOL [Concomitant]
     Indication: PAIN
  9. SOMA [Concomitant]
     Indication: MUSCLE RELAXANT THERAPY
  10. KETOROLAC [Concomitant]
     Indication: PAIN
  11. DIAZEPAM [Concomitant]
     Indication: BLADDER SPASM
  12. GABAPENTIN [Concomitant]
     Indication: FIBROMYALGIA
  13. METOPROLOL [Concomitant]
     Indication: HYPERTENSION
  14. HYDROCODONE/APAP [Concomitant]
     Indication: PAIN
  15. VESICARE [Concomitant]
     Indication: KIDNEY INFECTION

REACTIONS (2)
  - Injection site pruritus [Recovered/Resolved]
  - Injection site pain [Recovered/Resolved]
